FAERS Safety Report 4683442-9 (Version None)
Quarter: 2005Q2

REPORT INFORMATION
  Report Type: 
  Country: None (occurrence: None)
  Receive Date: 20050607
  Receipt Date: 20050526
  Transmission Date: 20051028
  Serious: Yes (Hospitalization, Other)
  Sender: FDA-Public Use
  Company Number: US-JNJFOC-20050600067

PATIENT
  Sex: Female
  Weight: 90.72 kg

DRUGS (6)
  1. REMICADE [Suspect]
     Indication: RHEUMATOID ARTHRITIS
     Route: 042
  2. SYNTHROID [Concomitant]
  3. PREDNISONE [Concomitant]
  4. FOLIC ACID [Concomitant]
  5. ROCICET [Concomitant]
  6. MTX [Concomitant]

REACTIONS (4)
  - ATRIAL FIBRILLATION [None]
  - CERVICAL VERTEBRAL FRACTURE [None]
  - NEUROPATHY PERIPHERAL [None]
  - SKIN DISORDER [None]
